FAERS Safety Report 8118725-3 (Version None)
Quarter: 2012Q1

REPORT INFORMATION
  Report Type: 
  Country: None (occurrence: None)
  Receive Date: 20120207
  Receipt Date: 20120126
  Transmission Date: 20120608
  Serious: Yes (Other)
  Sender: FDA-Public Use
  Company Number: US-RB-034025-12

PATIENT
  Age: 59 Year
  Sex: Female

DRUGS (2)
  1. MUCINEX [Suspect]
     Indication: INFECTION
     Dosage: 20-JAN-2012, 2 PUMPS OF SPRAYS A DAY
     Route: 045
     Dates: start: 20120120
  2. MUCINEX [Suspect]
     Dosage: 20-JAN-2012, 2 PUMPS OF SPRAYS A DAY
     Route: 045
     Dates: start: 20120120

REACTIONS (3)
  - EPISTAXIS [None]
  - NASAL DISCOMFORT [None]
  - HEADACHE [None]
